FAERS Safety Report 4925940-6 (Version None)
Quarter: 2006Q1

REPORT INFORMATION
  Report Type: 
  Country: None (occurrence: None)
  Receive Date: 20060228
  Receipt Date: 20050419
  Transmission Date: 20060701
  Serious: No
  Sender: FDA-Public Use
  Company Number: US-GLAXOSMITHKLINE-A0554801A

PATIENT
  Age: 8 Year
  Sex: Male

DRUGS (2)
  1. LAMICTAL [Suspect]
     Dosage: 150MG TWICE PER DAY
     Route: 048
  2. ADDERALL 10 [Concomitant]
     Route: 065

REACTIONS (4)
  - ERUCTATION [None]
  - FLATULENCE [None]
  - GASTRIC DISORDER [None]
  - INCORRECT ROUTE OF DRUG ADMINISTRATION [None]
